FAERS Safety Report 20141455 (Version 1)
Quarter: 2021Q4

REPORT INFORMATION
  Report Type: Spontaneous
  Country: MY (occurrence: MY)
  Receive Date: 20211202
  Receipt Date: 20211202
  Transmission Date: 20220303
  Serious: Yes (Hospitalization, Other)
  Sender: FDA-Public Use
  Company Number: MY-GLAXOSMITHKLINE-MY2021GSK243195

PATIENT
  Age: 33 Year
  Sex: Female

DRUGS (3)
  1. ALBUTEROL SULFATE [Suspect]
     Active Substance: ALBUTEROL SULFATE
     Indication: Asthma
     Dosage: UNK
     Route: 055
  2. ALBUTEROL SULFATE [Suspect]
     Active Substance: ALBUTEROL SULFATE
     Dosage: 200 UG, HOURLY
     Route: 055
  3. ALBUTEROL SULFATE [Suspect]
     Active Substance: ALBUTEROL SULFATE
     Indication: Asthma
     Dosage: 5 MG
     Route: 055

REACTIONS (15)
  - Lactic acidosis [Recovered/Resolved]
  - Dyspnoea [Recovered/Resolved]
  - Oropharyngeal pain [Recovered/Resolved]
  - Cough [Recovered/Resolved]
  - Wheezing [Recovered/Resolved]
  - Chest discomfort [Recovered/Resolved]
  - Communication disorder [Recovered/Resolved]
  - Tachypnoea [Recovered/Resolved]
  - Obstructive airways disorder [Recovered/Resolved]
  - Asthma [Recovered/Resolved]
  - Metabolic acidosis [Recovered/Resolved]
  - Hypophosphataemia [Recovered/Resolved]
  - Muscle fatigue [Recovered/Resolved]
  - Hyperlactacidaemia [Recovered/Resolved]
  - Product administration error [Unknown]
